FAERS Safety Report 6272284-9 (Version None)
Quarter: 2009Q3

REPORT INFORMATION
  Report Type: 
  Country: None (occurrence: None)
  Receive Date: 20090717
  Receipt Date: 20090707
  Transmission Date: 20100115
  Serious: Yes (Hospitalization, Other)
  Sender: FDA-Public Use
  Company Number: HU-ELI_LILLY_AND_COMPANY-HU200902004784

PATIENT
  Age: 72 Year
  Sex: Male

DRUGS (3)
  1. HUMULIN 70/30 [Suspect]
     Indication: DIABETES MELLITUS
     Dosage: 34 IU, DAILY (1/D)
     Route: 058
  2. HUMULIN 70/30 [Suspect]
     Dosage: 12 IU, EACH EVENING
     Route: 058
  3. HUMULIN N [Suspect]
     Indication: DIABETES MELLITUS
     Dosage: 8 IU, DAILY (1/D)
     Route: 058

REACTIONS (4)
  - BLOOD GLUCOSE DECREASED [None]
  - BLOOD GLUCOSE FLUCTUATION [None]
  - CATARACT [None]
  - EYE HAEMORRHAGE [None]
